FAERS Safety Report 10657798 (Version 1)
Quarter: 2014Q4

REPORT INFORMATION
  Report Type: Spontaneous
  Country: US (occurrence: None)
  Receive Date: 20141205
  Receipt Date: 20141205
  Transmission Date: 20150529
  Serious: Yes (Hospitalization)
  Sender: FDA-Public Use
  Company Number: USA-2014101641

PATIENT
  Age: 85 Year
  Sex: Male

DRUGS (1)
  1. POMALYST [Suspect]
     Active Substance: POMALIDOMIDE
     Indication: PLASMA CELL MYELOMA
     Dosage: 1.5 MG, 21 IN 28 D, PO?07/19/2014 - PERMANENTLY DISCONTINUED
     Route: 048
     Dates: start: 20140719

REACTIONS (1)
  - Treatment failure [None]

NARRATIVE: CASE EVENT DATE: 2014
